FAERS Safety Report 20841484 (Version 1)
Quarter: 2022Q2

REPORT INFORMATION
  Report Type: Spontaneous
  Country: CN (occurrence: CN)
  Receive Date: 20220518
  Receipt Date: 20220518
  Transmission Date: 20220721
  Serious: Yes (Hospitalization, Other)
  Sender: FDA-Public Use
  Company Number: CN-PFIZER INC-202200679294

PATIENT
  Age: 19 Month
  Sex: Male
  Weight: 11 kg

DRUGS (1)
  1. CYTARABINE [Suspect]
     Active Substance: CYTARABINE
     Indication: Acute myelomonocytic leukaemia
     Dosage: 3000 MG/M2, 1X/DAY
     Route: 041
     Dates: start: 20220412, end: 20220419

REACTIONS (7)
  - Pyrexia [Recovered/Resolved]
  - Agranulocytosis [Unknown]
  - Full blood count decreased [Unknown]
  - Pallor [Unknown]
  - Asthenia [Unknown]
  - Decreased appetite [Unknown]
  - Myelosuppression [Unknown]

NARRATIVE: CASE EVENT DATE: 20220401
